FAERS Safety Report 8484643-4 (Version None)
Quarter: 2012Q2

REPORT INFORMATION
  Report Type: 
  Country: None (occurrence: None)
  Receive Date: 20120625
  Receipt Date: 20120612
  Transmission Date: 20120825
  Serious: Yes (Hospitalization)
  Sender: FDA-Public Use
  Company Number: 2012AP001202

PATIENT
  Age: 62 Year
  Sex: Male

DRUGS (5)
  1. DILT-CD [Suspect]
     Indication: PRODUCT USED FOR UNKNOWN INDICATION
     Dosage: 240 MG;QD
  2. RANOLAZINE [Suspect]
     Indication: MYOCARDIAL ISCHAEMIA
     Dosage: 500MG;BID ; 1000 MG;BID
  3. PREDNISONE [Suspect]
     Indication: PRODUCT USED FOR UNKNOWN INDICATION
  4. TACROLIMUS [Suspect]
     Indication: RENAL TRANSPLANT
  5. ENALAPRIL MALEATE [Suspect]
     Indication: PRODUCT USED FOR UNKNOWN INDICATION
     Dosage: 2.5 MG;QD

REACTIONS (9)
  - DECREASED APPETITE [None]
  - FATIGUE [None]
  - URINE OUTPUT DECREASED [None]
  - LETHARGY [None]
  - TREMOR [None]
  - RENAL FAILURE ACUTE [None]
  - SINUS BRADYCARDIA [None]
  - TOXICITY TO VARIOUS AGENTS [None]
  - DRUG INTERACTION [None]
